FAERS Safety Report 7441098-6 (Version None)
Quarter: 2011Q2

REPORT INFORMATION
  Report Type: 
  Country: None (occurrence: None)
  Receive Date: 20110427
  Receipt Date: 20110421
  Transmission Date: 20111010
  Serious: Yes (Life-Threatening)
  Sender: FDA-Public Use
  Company Number: IT-BAYER-2011-034137

PATIENT
  Age: 76 Year
  Sex: Female

DRUGS (3)
  1. CORTICOSTEROID NOS [Concomitant]
     Indication: SEASONAL ALLERGY
  2. ULTRAVIST 150 [Suspect]
     Indication: COMPUTERISED TOMOGRAM
     Dosage: UNK
     Route: 042
     Dates: start: 20110414, end: 20110414
  3. CORTICOSTEROID NOS [Concomitant]
     Indication: PSORIASIS

REACTIONS (3)
  - BRONCHOSPASM [None]
  - RHINITIS [None]
  - ERYTHEMA [None]
